FAERS Safety Report 19155859 (Version 1)
Quarter: 2021Q2

REPORT INFORMATION
  Report Type: Report from Study
  Country: CA (occurrence: CA)
  Receive Date: 20210420
  Receipt Date: 20210420
  Transmission Date: 20210717
  Serious: Yes (Hospitalization, Other)
  Sender: FDA-Public Use
  Company Number: CA-BEH-2021130679

PATIENT
  Age: 46 Year
  Sex: Female
  Weight: 54.4 kg

DRUGS (1)
  1. HIZENTRA [Suspect]
     Active Substance: HUMAN IMMUNOGLOBULIN G
     Indication: SECONDARY IMMUNODEFICIENCY
     Dosage: 6 GRAM, QW
     Route: 065
     Dates: start: 20200226, end: 202012

REACTIONS (7)
  - Bacteraemia [Unknown]
  - Renal disorder [Unknown]
  - Chills [Unknown]
  - Anaemia [Unknown]
  - Drug ineffective [Unknown]
  - Pyrexia [Unknown]
  - Pneumothorax [Unknown]

NARRATIVE: CASE EVENT DATE: 202006
